FAERS Safety Report 13661375 (Version 1)
Quarter: 2017Q2

REPORT INFORMATION
  Report Type: Spontaneous
  Country: US (occurrence: US)
  Receive Date: 20170616
  Receipt Date: 20170616
  Transmission Date: 20170830
  Serious: No
  Sender: FDA-Public Use
  Company Number: US-US WORLDMEDS, LLC-USW201612-000885

PATIENT
  Sex: Male
  Weight: 98.43 kg

DRUGS (12)
  1. ASPIRIN. [Concomitant]
     Active Substance: ASPIRIN
  2. LINZESS [Concomitant]
     Active Substance: LINACLOTIDE
  3. ATORVASTATIN [Concomitant]
     Active Substance: ATORVASTATIN
  4. NOVOLOG [Concomitant]
     Active Substance: INSULIN ASPART
  5. APOKYN [Suspect]
     Active Substance: APOMORPHINE HYDROCHLORIDE
     Indication: PARKINSON^S DISEASE
     Route: 058
     Dates: start: 20160729
  6. PRAMIPEXOLE. [Concomitant]
     Active Substance: PRAMIPEXOLE
  7. LEVO/CARBIDOPA [Concomitant]
  8. METFORMIN [Concomitant]
     Active Substance: METFORMIN HYDROCHLORIDE
  9. INVOKANA [Concomitant]
     Active Substance: CANAGLIFLOZIN
  10. LEVEMIR [Concomitant]
     Active Substance: INSULIN DETEMIR
  11. APOKYN [Suspect]
     Active Substance: APOMORPHINE HYDROCHLORIDE
     Route: 058
  12. SERTALINE [Concomitant]
     Active Substance: SERTRALINE HYDROCHLORIDE

REACTIONS (2)
  - Somnolence [Recovered/Resolved]
  - Dysphoria [Recovered/Resolved]
